FAERS Safety Report 6022009-7 (Version None)
Quarter: 2008Q4

REPORT INFORMATION
  Report Type: 
  Country: None (occurrence: None)
  Receive Date: 20081229
  Receipt Date: 20081223
  Transmission Date: 20090506
  Serious: Yes (Other)
  Sender: FDA-Public Use
  Company Number: BE-ASTRAZENECA-2008AC03223

PATIENT
  Age: 14908 Day
  Sex: Male
  Weight: 62.5 kg

DRUGS (4)
  1. SEROQUEL [Suspect]
     Indication: ALCOHOLISM
     Dosage: 1/2 CO 3 X DAY
     Route: 048
     Dates: start: 20080911, end: 20080913
  2. VALIUM [Concomitant]
     Indication: ALCOHOLISM
     Dosage: 4 X 2 CO/DAY
     Route: 048
     Dates: start: 20080909
  3. BISOPROLOL FUMARATE [Concomitant]
     Indication: HYPERTENSION
     Dosage: 1 X 1 CO/DAY
     Route: 048
  4. BEFACT FORTE [Concomitant]

REACTIONS (2)
  - CONFUSIONAL STATE [None]
  - HEPATIC ENZYME INCREASED [None]
